FAERS Safety Report 12781348 (Version 4)
Quarter: 2016Q4

REPORT INFORMATION
  Report Type: Report from Study
  Country: US (occurrence: US)
  Receive Date: 20160926
  Receipt Date: 20161219
  Transmission Date: 20170207
  Serious: Yes (Hospitalization)
  Sender: FDA-Public Use
  Company Number: US-ACTELION-A-US2015-126964

PATIENT
  Age: 57 Year
  Sex: Male

DRUGS (4)
  1. VELETRI [Suspect]
     Active Substance: EPOPROSTENOL
     Indication: PULMONARY HYPERTENSION
     Dosage: 12 NG/KG, PER MIN
     Route: 042
     Dates: start: 20151029, end: 20151102
  2. VELETRI [Suspect]
     Active Substance: EPOPROSTENOL
     Dosage: 13 NG/KG, PER MIN
     Route: 042
     Dates: start: 20151102
  3. OPSUMIT [Concomitant]
     Active Substance: MACITENTAN
     Indication: PULMONARY ARTERIAL HYPERTENSION
  4. ADEMPAS [Concomitant]
     Active Substance: RIOCIGUAT

REACTIONS (17)
  - Abdominal pain upper [Unknown]
  - Fatigue [Unknown]
  - Dyspnoea [Unknown]
  - Pain in jaw [Unknown]
  - Decreased appetite [Unknown]
  - Anaemia [Unknown]
  - Depressed mood [Unknown]
  - Headache [Unknown]
  - Gastrointestinal haemorrhage [Unknown]
  - Haematemesis [Unknown]
  - Abdominal discomfort [Unknown]
  - Pruritus generalised [Unknown]
  - Pallor [Unknown]
  - Gastrointestinal disorder [Unknown]
  - Abdominal pain [Unknown]
  - Condition aggravated [Unknown]
  - Lethargy [Unknown]

NARRATIVE: CASE EVENT DATE: 201511
